FAERS Safety Report 8052996-7 (Version None)
Quarter: 2012Q1

REPORT INFORMATION
  Report Type: 
  Country: None (occurrence: None)
  Receive Date: 20120118
  Receipt Date: 20120110
  Transmission Date: 20120608
  Serious: Yes (Other)
  Sender: FDA-Public Use
  Company Number: ES-BAXTER-2012BH001296

PATIENT
  Sex: Female

DRUGS (5)
  1. DOXORUBICIN HCL [Suspect]
     Indication: BREAST CANCER
     Route: 042
  2. CYCLOPHOSPHAMIDE [Suspect]
     Indication: BREAST CANCER
     Route: 042
  3. TAXOTERE [Suspect]
     Indication: BREAST CANCER
     Route: 042
  4. DEXAMETHASONE TAB [Suspect]
     Indication: BREAST CANCER
     Route: 042
  5. NEUPOGEN [Suspect]
     Indication: PROPHYLAXIS
     Route: 065

REACTIONS (1)
  - MENSTRUAL DISORDER [None]
